FAERS Safety Report 17289025 (Version 2)
Quarter: 2020Q1

REPORT INFORMATION
  Report Type: Spontaneous
  Country: US (occurrence: US)
  Receive Date: 20200120
  Receipt Date: 20200121
  Transmission Date: 20200409
  Serious: Yes (Other)
  Sender: FDA-Public Use
  Company Number: US-CELGENEUS-USA-20200105272

PATIENT
  Age: 64 Year
  Sex: Female

DRUGS (1)
  1. REVLIMID [Suspect]
     Active Substance: LENALIDOMIDE
     Indication: PLASMA CELL MYELOMA
     Dosage: 2.5 MILLIGRAM
     Route: 048
     Dates: start: 201912

REACTIONS (2)
  - Renal disorder [Unknown]
  - Hordeolum [Unknown]

NARRATIVE: CASE EVENT DATE: 202001
